FAERS Safety Report 7715363-9 (Version None)
Quarter: 2011Q3

REPORT INFORMATION
  Report Type: 
  Country: None (occurrence: None)
  Receive Date: 20110810
  Receipt Date: 20110525
  Transmission Date: 20111222
  Serious: Yes (Other)
  Sender: FDA-Public Use
  Company Number: 1000020748

PATIENT
  Age: 28 Year
  Sex: Female

DRUGS (5)
  1. SAVELLA [Suspect]
     Indication: FIBROMYALGIA
     Dosage: 50 MG BID (50 MG, 2 IN 1 D), ORAL
     Route: 048
     Dates: start: 20100806, end: 20110101
  2. SAVELLA [Suspect]
     Indication: FIBROMYALGIA
     Dosage: 12.5 MG BID(12.5 MG, 2 IN 1 D),ORAL 25 MG BID (25 MG, 2 IN 1 D), ORAL
     Route: 048
     Dates: start: 20100729, end: 20100805
  3. SAVELLA [Suspect]
     Indication: FIBROMYALGIA
     Dosage: 12.5 MG BID(12.5 MG, 2 IN 1 D),ORAL 25 MG BID (25 MG, 2 IN 1 D), ORAL
     Route: 048
     Dates: start: 20100724, end: 20100728
  4. RISPERIDONE [Concomitant]
  5. BUPROPION (BUPROPION) (BUPROPION) [Concomitant]

REACTIONS (1)
  - SUICIDAL IDEATION [None]
